FAERS Safety Report 17950422 (Version 3)
Quarter: 2021Q2

REPORT INFORMATION
  Report Type: Report from Study
  Country: US (occurrence: US)
  Receive Date: 20200626
  Receipt Date: 20210614
  Transmission Date: 20210717
  Serious: Yes (Other)
  Sender: FDA-Public Use
  Company Number: US-SHIRE-US202020371

PATIENT
  Sex: Female
  Weight: 87 kg

DRUGS (20)
  1. VITAMIN D2 [Concomitant]
     Active Substance: ERGOCALCIFEROL
     Route: 065
  2. PROZAC [Concomitant]
     Active Substance: FLUOXETINE HYDROCHLORIDE
     Route: 065
  3. ACETAMINOPHEN. [Concomitant]
     Active Substance: ACETAMINOPHEN
     Route: 065
  4. DIPHENHYDRAMINE. [Concomitant]
     Active Substance: DIPHENHYDRAMINE
     Route: 065
  5. XANAX [Concomitant]
     Active Substance: ALPRAZOLAM
     Route: 065
  6. KLOR?CON [Concomitant]
     Active Substance: POTASSIUM CHLORIDE
     Route: 065
  7. OMEGA 3 [Concomitant]
     Active Substance: OMEGA-3 FATTY ACIDS
     Route: 065
  8. SYNTHROID [Concomitant]
     Active Substance: LEVOTHYROXINE SODIUM
     Route: 065
  9. LOVASTATIN. [Concomitant]
     Active Substance: LOVASTATIN
     Route: 065
  10. EPINEPHRINE. [Concomitant]
     Active Substance: EPINEPHRINE
     Route: 065
  11. NORVASC [Concomitant]
     Active Substance: AMLODIPINE BESYLATE
     Route: 065
  12. CUVITRU [Suspect]
     Active Substance: HUMAN IMMUNOGLOBULIN G
     Indication: IMMUNODEFICIENCY
     Dosage: 15 GRAM, 1X/WEEK
     Route: 058
  13. LIDOCAINE. [Concomitant]
     Active Substance: LIDOCAINE
     Route: 065
  14. VITAMIN C [Concomitant]
     Active Substance: ASCORBIC ACID
     Route: 065
  15. TORSEMIDE. [Concomitant]
     Active Substance: TORSEMIDE
     Route: 065
  16. MULTIVITAMIN [Concomitant]
     Active Substance: VITAMINS
     Route: 065
  17. CUVITRU [Suspect]
     Active Substance: HUMAN IMMUNOGLOBULIN G
     Indication: IMMUNODEFICIENCY COMMON VARIABLE
     Dosage: 15 GRAM, 1X/WEEK
     Route: 058
     Dates: start: 20201017
  18. AMBIEN [Concomitant]
     Active Substance: ZOLPIDEM TARTRATE
     Route: 065
  19. LOPRESSOR [Concomitant]
     Active Substance: METOPROLOL TARTRATE
     Route: 065
  20. ZESTRIL [Concomitant]
     Active Substance: LISINOPRIL
     Route: 065

REACTIONS (8)
  - Stress at work [Unknown]
  - Inappropriate schedule of product administration [Unknown]
  - Myocardial infarction [Unknown]
  - Polyp [Unknown]
  - Gastrointestinal haemorrhage [Unknown]
  - Haematemesis [Unknown]
  - Malignant hypertension [Unknown]
  - Inability to afford medication [Recovered/Resolved]
